FAERS Safety Report 26199564 (Version 1)
Quarter: 2025Q4

REPORT INFORMATION
  Report Type: Spontaneous
  Country: GB (occurrence: GB)
  Receive Date: 20251225
  Receipt Date: 20251225
  Transmission Date: 20260118
  Serious: Yes (Disabling, Other)
  Sender: MICRO LABS LIMITED
  Company Number: None

PATIENT
  Sex: Female
  Weight: 79 kg

DRUGS (1)
  1. APIXABAN [Suspect]
     Active Substance: APIXABAN
     Indication: Product used for unknown indication

REACTIONS (1)
  - Atrial fibrillation [Recovered/Resolved]
